FAERS Safety Report 15220371 (Version 7)
Quarter: 2019Q3

REPORT INFORMATION
  Report Type: Spontaneous
  Country: US (occurrence: US)
  Receive Date: 20180731
  Receipt Date: 20190917
  Transmission Date: 20191004
  Serious: No
  Sender: FDA-Public Use
  Company Number: US-PFIZER INC-2018303747

PATIENT
  Age: 58 Year
  Sex: Female
  Weight: 43.54 kg

DRUGS (14)
  1. BUPROPION. [Suspect]
     Active Substance: BUPROPION
     Indication: CORTICOBASAL DEGENERATION
     Dosage: 150 MG, 1X/DAY
     Route: 048
     Dates: start: 20180430
  2. OMEGA 3 [DOCOSAHEXAENOIC ACID;EICOSAPENTAENOIC ACID;TOCOPHEROL] [Concomitant]
     Active Substance: DOCONEXENT\ICOSAPENT\TOCOPHEROL
     Indication: EYE DISORDER
     Dosage: 2100 UNK, UNK
     Route: 048
     Dates: start: 201406
  3. MEMANTINE. [Suspect]
     Active Substance: MEMANTINE
     Indication: DEMENTIA
     Dosage: 10 MG, UNK
     Dates: start: 20180430
  4. BUPROPION. [Suspect]
     Active Substance: BUPROPION
     Indication: DEPRESSION
  5. DONEPEZIL HCL [Suspect]
     Active Substance: DONEPEZIL HYDROCHLORIDE
     Indication: DEMENTIA
  6. CALCIUM [Concomitant]
     Active Substance: CALCIUM
     Indication: HUNGER
     Dosage: 600 MG, 3X/DAY
  7. RESTASIS [Concomitant]
     Active Substance: CYCLOSPORINE
     Indication: EYE DISORDER
     Dosage: UNK [0.05 % DROP]
  8. ESTROGENS CONJUGATED [Concomitant]
     Active Substance: ESTROGENS, CONJUGATED
     Dosage: UNK, 2X/WEEK
  9. ZOLOFT [Suspect]
     Active Substance: SERTRALINE HYDROCHLORIDE
     Indication: DEPRESSION
     Dosage: 100 MG, DAILY
     Route: 048
     Dates: start: 201512, end: 20180430
  10. CELECOXIB. [Suspect]
     Active Substance: CELECOXIB
     Indication: MUSCULOSKELETAL DISCOMFORT
     Dosage: 200 MG, UNK
     Dates: start: 201509, end: 201805
  11. CALCIUM [Concomitant]
     Active Substance: CALCIUM
     Dosage: UNK
     Dates: start: 201509
  12. ZOLOFT [Suspect]
     Active Substance: SERTRALINE HYDROCHLORIDE
     Indication: ANXIETY
     Dosage: 100 MG, UNK
     Dates: start: 20190225
  13. DONEPEZIL HCL [Suspect]
     Active Substance: DONEPEZIL HYDROCHLORIDE
     Indication: MENTAL DISORDER
     Dosage: 10 MG, UNK
     Dates: start: 201802
  14. CALCIUM CARBONATE/VITAMIN D3 [Concomitant]
     Active Substance: CALCIUM CARBONATE\CHOLECALCIFEROL
     Indication: MUSCULOSKELETAL DISCOMFORT
     Dosage: 600 MG, UNK

REACTIONS (10)
  - Nausea [Recovered/Resolved]
  - Eating disorder [Recovered/Resolved]
  - Urinary incontinence [Not Recovered/Not Resolved]
  - Chills [Not Recovered/Not Resolved]
  - Crying [Recovered/Resolved]
  - Hyperhidrosis [Not Recovered/Not Resolved]
  - Abdominal discomfort [Unknown]
  - Feeling hot [Unknown]
  - Dizziness [Recovered/Resolved]
  - Weight decreased [Recovered/Resolved]

NARRATIVE: CASE EVENT DATE: 20180430
